FAERS Safety Report 18387012 (Version 1)
Quarter: 2020Q4

REPORT INFORMATION
  Report Type: Spontaneous
  Country: US (occurrence: US)
  Receive Date: 20201014
  Receipt Date: 20201014
  Transmission Date: 20210114
  Serious: Yes (Death)
  Sender: FDA-Public Use
  Company Number: None

PATIENT
  Age: 53 Year
  Sex: Female
  Weight: 89.81 kg

DRUGS (27)
  1. ASCORBID ACID (VITAMIN C) [Concomitant]
  2. CHOLECALCIFEROL (VITAMIN D3) [Concomitant]
  3. APIXABAN [Concomitant]
     Active Substance: APIXABAN
  4. SODIUM BICARBONATE/D5W [Concomitant]
  5. DEXMEDETOMIDINE. [Concomitant]
     Active Substance: DEXMEDETOMIDINE
  6. FUROSEMIDE. [Concomitant]
     Active Substance: FUROSEMIDE
  7. METOPROLOL. [Concomitant]
     Active Substance: METOPROLOL
  8. PATIROMER CALCIUM SORBITEX [Concomitant]
  9. PIPERACILLIN AND TAZOBACTAM [Concomitant]
     Active Substance: PIPERACILLIN SODIUM\TAZOBACTAM SODIUM
  10. PROPOFOL. [Concomitant]
     Active Substance: PROPOFOL
  11. DILTIAZEM. [Concomitant]
     Active Substance: DILTIAZEM
  12. VANCOMYCIN [Concomitant]
     Active Substance: VANCOMYCIN
  13. REMDESIVIR SOLUTION 100MG VIAL [Suspect]
     Active Substance: REMDESIVIR
     Indication: COVID-19 PNEUMONIA
     Dosage: ?          OTHER FREQUENCY:Q 24 HR;?
     Route: 042
     Dates: start: 20200803, end: 20200807
  14. ACETAMINOPHEN. [Concomitant]
     Active Substance: ACETAMINOPHEN
  15. DEXAMETHASONE. [Concomitant]
     Active Substance: DEXAMETHASONE
  16. INSULIN, REGULAR [Concomitant]
     Active Substance: INSULIN NOS
  17. NOREPHINEPHRINE [Concomitant]
     Active Substance: NOREPINEPHRINE\NOREPINEPHRINE BITARTRATE
  18. CEFAZOLIN [Concomitant]
     Active Substance: CEFAZOLIN
  19. MIDAZOLAM. [Concomitant]
     Active Substance: MIDAZOLAM
  20. MUPIROCIN. [Concomitant]
     Active Substance: MUPIROCIN
  21. REMDESIVIR SOLUTION 100MG VIAL [Suspect]
     Active Substance: REMDESIVIR
     Indication: COVID-19 PNEUMONIA
     Route: 042
     Dates: start: 20200802, end: 20200802
  22. CHLORHEXIDINE [Concomitant]
     Active Substance: CHLORHEXIDINE
  23. MORPHINE SULFATE. [Concomitant]
     Active Substance: MORPHINE SULFATE
  24. ONDANSETRON [Concomitant]
     Active Substance: ONDANSETRON
  25. ATORVASTATIN [Concomitant]
     Active Substance: ATORVASTATIN
  26. SODIUM BICARBONATE. [Concomitant]
     Active Substance: SODIUM BICARBONATE
  27. ZINC SULFATE. [Concomitant]
     Active Substance: ZINC SULFATE

REACTIONS (7)
  - Renal impairment [None]
  - Gastrointestinal haemorrhage [None]
  - Hypotension [None]
  - Anaemia [None]
  - White blood cell count increased [None]
  - Atrial fibrillation [None]
  - Cardiac arrest [None]

NARRATIVE: CASE EVENT DATE: 20200820
